FAERS Safety Report 5444167-5 (Version None)
Quarter: 2007Q3

REPORT INFORMATION
  Report Type: 
  Country: None (occurrence: None)
  Receive Date: 20070904
  Receipt Date: 20070904
  Transmission Date: 20080115
  Serious: No
  Sender: FDA-Public Use
  Company Number: None

PATIENT
  Sex: Male
  Weight: 91.173 kg

DRUGS (2)
  1. CHANTIX [Suspect]
     Indication: SMOKING CESSATION THERAPY
     Dosage: 0.5 AND 1.0 DAILY PO
     Route: 048
     Dates: start: 20070726, end: 20070823
  2. LEXAPRO [Concomitant]

REACTIONS (1)
  - HEADACHE [None]
